FAERS Safety Report 24078147 (Version 3)
Quarter: 2024Q3

REPORT INFORMATION
  Report Type: Spontaneous
  Country: US (occurrence: US)
  Receive Date: 20240711
  Receipt Date: 20240911
  Transmission Date: 20241016
  Serious: No
  Sender: APOTEX
  Company Number: US-APOTEX-2024AP007846

PATIENT
  Sex: Female

DRUGS (1)
  1. MOXIFLOXACIN [Suspect]
     Active Substance: MOXIFLOXACIN
     Indication: Product used for unknown indication
     Dosage: 4 GTT DROPS, Q.H.S. (IN ONE EYE ONLY, USES THE PRODUCT AT NIGHT)
     Route: 047
     Dates: start: 20240617

REACTIONS (3)
  - Product dose omission issue [Unknown]
  - Product packaging quantity issue [Unknown]
  - Eye disorder [Unknown]

NARRATIVE: CASE EVENT DATE: 20240601
